FAERS Safety Report 8815497 (Version 2)
Quarter: 2012Q4

REPORT INFORMATION
  Report Type: 
  Country: GR (occurrence: GR)
  Receive Date: 20120928
  Receipt Date: 20121010
  Transmission Date: 20130627
  Serious: Yes (Death, Hospitalization)
  Sender: FDA-Public Use
  Company Number: GR-GLAXOSMITHKLINE-B0833069A

PATIENT
  Age: 79 Year
  Sex: Female

DRUGS (4)
  1. ARIXTRA [Suspect]
     Indication: PRODUCT USED FOR UNKNOWN INDICATION
     Route: 065
  2. SINTROM [Concomitant]
  3. PAPAVERINE [Concomitant]
  4. TAZOCIN [Concomitant]

REACTIONS (4)
  - Pulmonary embolism [Fatal]
  - Vaginal haemorrhage [Unknown]
  - Vaginal cyst [Unknown]
  - Prothrombin time shortened [Unknown]
